FAERS Safety Report 20691678 (Version 1)
Quarter: 2022Q2

REPORT INFORMATION
  Report Type: Spontaneous
  Country: US (occurrence: None)
  Receive Date: 20220407
  Receipt Date: 20220407
  Transmission Date: 20220721
  Serious: Yes (Hospitalization)
  Sender: FDA-Public Use
  Company Number: None

PATIENT
  Age: 16 Year
  Sex: Male
  Weight: 42 kg

DRUGS (3)
  1. MERCAPTOPURINE [Suspect]
     Active Substance: MERCAPTOPURINE
     Dates: start: 20210129, end: 20220105
  2. METHOTREXATE [Suspect]
     Active Substance: METHOTREXATE
     Dates: start: 20210129, end: 20220105
  3. VINCRISTINE SULFATE [Suspect]
     Active Substance: VINCRISTINE SULFATE
     Dates: start: 20210129, end: 20211229

REACTIONS (3)
  - Abdominal pain [None]
  - Pulmonary mass [None]
  - Pseudocyst [None]

NARRATIVE: CASE EVENT DATE: 20220105
